FAERS Safety Report 5472239-8 (Version None)
Quarter: 2007Q3

REPORT INFORMATION
  Report Type: 
  Country: None (occurrence: None)
  Receive Date: 20070926
  Receipt Date: 20070918
  Transmission Date: 20080115
  Serious: Yes (Other)
  Sender: FDA-Public Use
  Company Number: 2007323362

PATIENT
  Age: 4 Year
  Sex: Male
  Weight: 16.7831 kg

DRUGS (1)
  1. LISTERINE AGENT COOL BLUE GALCIER MINT (NO ACTIVE INGREDIENT) [Suspect]
     Indication: DENTAL PLAQUE
     Dosage: 10 ML 3-5 TIMES A WEEK (TWICE A DAY) (10 ML), ORAL
     Route: 048
     Dates: start: 20070201, end: 20070301

REACTIONS (2)
  - CONVULSION [None]
  - CRYING [None]
